FAERS Safety Report 14763580 (Version 1)
Quarter: 2018Q2

REPORT INFORMATION
  Report Type: Spontaneous
  Country: US (occurrence: US)
  Receive Date: 20180410
  Receipt Date: 20180410
  Transmission Date: 20180711
  Serious: Yes (Other)
  Sender: FDA-Public Use
  Company Number: None

PATIENT
  Age: 56 Year
  Sex: Female
  Weight: 106.2 kg

DRUGS (19)
  1. NEURONTIN [Concomitant]
     Active Substance: GABAPENTIN
  2. SINGULAIR [Concomitant]
     Active Substance: MONTELUKAST SODIUM
  3. CELEBREX [Concomitant]
     Active Substance: CELECOXIB
  4. ELMIRON [Concomitant]
     Active Substance: PENTOSAN POLYSULFATE SODIUM
  5. B2 [Concomitant]
  6. MULTI VITAMIN [Concomitant]
     Active Substance: VITAMINS
  7. BENADRYL [Concomitant]
     Active Substance: DIPHENHYDRAMINE HYDROCHLORIDE
  8. SAVELLA [Concomitant]
     Active Substance: MILNACIPRAN HYDROCHLORIDE
  9. ZANAFLEX [Concomitant]
     Active Substance: TIZANIDINE HYDROCHLORIDE
  10. DELZICOL [Concomitant]
     Active Substance: MESALAMINE
  11. NORCO [Concomitant]
     Active Substance: ACETAMINOPHEN\HYDROCODONE BITARTRATE
  12. TRINTELLIX [Suspect]
     Active Substance: VORTIOXETINE HYDROBROMIDE
     Indication: FATIGUE
     Dosage: ?          QUANTITY:30 TABLET(S);?
     Route: 048
     Dates: start: 20180329, end: 20180404
  13. PREVASTIN [Concomitant]
  14. RELPAX [Concomitant]
     Active Substance: ELETRIPTAN HYDROBROMIDE
  15. RITALIN [Concomitant]
     Active Substance: METHYLPHENIDATE HYDROCHLORIDE
  16. CLARITIN [Concomitant]
     Active Substance: LORATADINE
  17. PROBIOTICS [Concomitant]
     Active Substance: PROBIOTICS NOS
  18. LEVOTHYROXINE. [Concomitant]
     Active Substance: LEVOTHYROXINE
  19. CLONAZEPAM. [Concomitant]
     Active Substance: CLONAZEPAM

REACTIONS (2)
  - Pruritus [None]
  - Headache [None]

NARRATIVE: CASE EVENT DATE: 20180331
